FAERS Safety Report 5730681-1 (Version None)
Quarter: 2008Q2

REPORT INFORMATION
  Report Type: 
  Country: None (occurrence: None)
  Receive Date: 20080507
  Receipt Date: 20080429
  Transmission Date: 20081010
  Serious: Yes (Death, Life-Threatening, Hospitalization, Other)
  Sender: FDA-Public Use
  Company Number: SE-ABBOTT-08P-150-0444629-00

PATIENT
  Age: 83 Year
  Sex: Male

DRUGS (14)
  1. ZEMPLAR [Suspect]
     Indication: RENAL FAILURE CHRONIC
     Dosage: 5 MCG/ML ONE DOSE, 1ML
     Route: 050
     Dates: start: 20080325, end: 20080325
  2. PARACETAMOL [Concomitant]
     Indication: PAIN
     Dates: start: 20080125
  3. DIGOXIN [Concomitant]
     Indication: ATRIAL FIBRILLATION
  4. EPOETIN ALFA [Concomitant]
     Indication: NEPHROGENIC ANAEMIA
     Dosage: 6000E/WEEK
     Dates: start: 20080304
  5. FUROSEMIDE [Concomitant]
     Indication: DRUG USE FOR UNKNOWN INDICATION
     Route: 048
     Dates: start: 20071203
  6. LACTULOSE [Concomitant]
     Indication: CONSTIPATION PROPHYLAXIS
     Dates: start: 20071201
  7. SODIUM BICARBONATE [Concomitant]
     Indication: METABOLIC ACIDOSIS
     Route: 048
     Dates: start: 20080123
  8. GLYCERYL TRINITRATE [Concomitant]
     Indication: ANGINA PECTORIS
     Route: 048
     Dates: start: 20070713
  9. PARENTROVITE [Concomitant]
     Indication: DRUG USE FOR UNKNOWN INDICATION
     Route: 048
     Dates: start: 20070101
  10. SEVELAMER [Concomitant]
     Indication: BLOOD PHOSPHORUS INCREASED
     Dosage: 800MG, 2X3
     Route: 048
     Dates: start: 20061101
  11. SERETIDE [Concomitant]
     Indication: CHRONIC OBSTRUCTIVE PULMONARY DISEASE
     Dosage: 500 MCG X2
     Route: 055
     Dates: start: 20080129
  12. TIOTROPIUM BROMIDE [Concomitant]
     Indication: CHRONIC OBSTRUCTIVE PULMONARY DISEASE
     Route: 055
     Dates: start: 20080122
  13. ACETYLSALICYLIC ACID SRT [Concomitant]
     Indication: THROMBOSIS PROPHYLAXIS
     Route: 048
     Dates: start: 20071201
  14. ZOPLIKLON [Concomitant]
     Indication: INSOMNIA
     Dosage: AT NIGHT
     Route: 048
     Dates: start: 20080224

REACTIONS (13)
  - ASTHMA [None]
  - C-REACTIVE PROTEIN INCREASED [None]
  - CHRONIC OBSTRUCTIVE PULMONARY DISEASE [None]
  - DYSPNOEA [None]
  - GENERAL PHYSICAL HEALTH DETERIORATION [None]
  - MULTI-ORGAN FAILURE [None]
  - OEDEMA [None]
  - OXYGEN SATURATION ABNORMAL [None]
  - PNEUMONIA [None]
  - RESPIRATORY FAILURE [None]
  - RESPIRATORY RATE INCREASED [None]
  - SEPSIS [None]
  - WHITE BLOOD CELL COUNT INCREASED [None]
